FAERS Safety Report 8030435-X (Version None)
Quarter: 2012Q1

REPORT INFORMATION
  Report Type: 
  Country: None (occurrence: None)
  Receive Date: 20120109
  Receipt Date: 20120109
  Transmission Date: 20120608
  Serious: Yes (Other)
  Sender: FDA-Public Use
  Company Number: None

PATIENT
  Age: 55 Year
  Sex: Female
  Weight: 86.182 kg

DRUGS (1)
  1. AZELASTINE HYDROCHLORIDE [Suspect]
     Indication: CONJUNCTIVITIS ALLERGIC
     Dosage: 2 DROPS
     Route: 031
     Dates: start: 20120104, end: 20120106

REACTIONS (3)
  - INFLUENZA LIKE ILLNESS [None]
  - HYPERTENSION [None]
  - PRURITUS [None]
